FAERS Safety Report 10470964 (Version 4)
Quarter: 2016Q1

REPORT INFORMATION
  Report Type: Spontaneous
  Country: NO (occurrence: NO)
  Receive Date: 20140923
  Receipt Date: 20160112
  Transmission Date: 20160525
  Serious: Yes (Life-Threatening, Hospitalization, Disabling)
  Sender: FDA-Public Use
  Company Number: PHHY2014NO122889

PATIENT
  Age: 42 Year
  Sex: Female
  Weight: 97 kg

DRUGS (2)
  1. GILENYA [Suspect]
     Active Substance: FINGOLIMOD HYDROCHLORIDE
     Indication: MULTIPLE SCLEROSIS
     Dosage: 0.5 MG, QD
     Route: 048
     Dates: start: 20140123, end: 20140612
  2. GILENYA [Suspect]
     Active Substance: FINGOLIMOD HYDROCHLORIDE
     Dosage: 1 DF, QD
     Route: 048

REACTIONS (8)
  - Dysphagia [Unknown]
  - Hemiparesis [Recovering/Resolving]
  - Aphasia [Unknown]
  - Functional gastrointestinal disorder [Unknown]
  - Paralysis [Unknown]
  - Central nervous system lesion [Recovering/Resolving]
  - Hemiplegia [Unknown]
  - Urinary tract disorder [Unknown]

NARRATIVE: CASE EVENT DATE: 20140605
